FAERS Safety Report 6763042-7 (Version None)
Quarter: 2010Q2

REPORT INFORMATION
  Report Type: 
  Country: None (occurrence: None)
  Receive Date: 20100609
  Receipt Date: 20100601
  Transmission Date: 20101027
  Serious: Yes (Death)
  Sender: FDA-Public Use
  Company Number: A0852916A

PATIENT
  Sex: Male

DRUGS (2)
  1. ARZERRA [Suspect]
     Dosage: 20MGML SINGLE DOSE
     Route: 042
     Dates: start: 20100325
  2. NO CONCURRENT MEDICATION [Concomitant]

REACTIONS (3)
  - DEATH [None]
  - METASTASES TO CENTRAL NERVOUS SYSTEM [None]
  - NEOPLASM [None]
